FAERS Safety Report 24110492 (Version 1)
Quarter: 2024Q3

REPORT INFORMATION
  Report Type: Spontaneous
  Country: US (occurrence: US)
  Receive Date: 20240718
  Receipt Date: 20240718
  Transmission Date: 20241016
  Serious: No
  Sender: PFIZER
  Company Number: US-PFIZER INC-PV202400093785

PATIENT
  Age: 62 Year
  Sex: Female
  Weight: 113.85 kg

DRUGS (1)
  1. DILTIAZEM HYDROCHLORIDE [Suspect]
     Active Substance: DILTIAZEM HYDROCHLORIDE

REACTIONS (2)
  - Drug hypersensitivity [Unknown]
  - Drug eruption [Unknown]
